FAERS Safety Report 4528596-X (Version None)
Quarter: 2004Q4

REPORT INFORMATION
  Report Type: 
  Country: None (occurrence: None)
  Receive Date: 20041216
  Receipt Date: 20041208
  Transmission Date: 20050328
  Serious: Yes (Other)
  Sender: FDA-Public Use
  Company Number: PHEH2004US13157

PATIENT
  Age: 73 Year
  Sex: Female
  Weight: 61 kg

DRUGS (2)
  1. MIACALCIN [Suspect]
     Indication: OSTEOPOROSIS
  2. MIACALCIN [Suspect]
     Dosage: 200 IU, QD
     Dates: start: 20041101, end: 20041102

REACTIONS (4)
  - ADVERSE DRUG REACTION [None]
  - DYSPEPSIA [None]
  - FAECES DISCOLOURED [None]
  - GASTRIC HAEMORRHAGE [None]
